FAERS Safety Report 9130989 (Version 2)
Quarter: 2020Q3

REPORT INFORMATION
  Report Type: Report from Study
  Country: LV (occurrence: LV)
  Receive Date: 20130301
  Receipt Date: 20130503
  Transmission Date: 20201105
  Serious: Yes (Life-Threatening)
  Sender: FDA-Public Use
  Company Number: LV-JNJFOC-20130215808

PATIENT
  Age: 28 Year
  Sex: Male
  Weight: 67 kg

DRUGS (9)
  1. ENTEROL NOS [Concomitant]
     Indication: PROPHYLAXIS
     Route: 048
     Dates: start: 20130204
  2. LINEZOLID. [Concomitant]
     Active Substance: LINEZOLID
  3. TMC207 [Suspect]
     Active Substance: BEDAQUILINE
     Indication: TUBERCULOSIS
     Route: 048
     Dates: start: 20130220
  4. NEUROMULTIVIT [Concomitant]
     Indication: PROPHYLAXIS
     Route: 048
     Dates: start: 20130204
  5. AMIKACIN. [Concomitant]
     Active Substance: AMIKACIN
  6. LEVOFLOXACIN. [Concomitant]
     Active Substance: LEVOFLOXACIN
  7. TMC207 [Suspect]
     Active Substance: BEDAQUILINE
     Indication: TUBERCULOSIS
     Route: 048
     Dates: start: 20130205
  8. PYRAZINAMID [Concomitant]
  9. CARSIL [Concomitant]
     Indication: PROPHYLAXIS
     Route: 048
     Dates: start: 201208

REACTIONS (1)
  - Bradycardia [Recovered/Resolved]

NARRATIVE: CASE EVENT DATE: 20130219
